FAERS Safety Report 6751572-3 (Version None)
Quarter: 2010Q2

REPORT INFORMATION
  Report Type: 
  Country: None (occurrence: None)
  Receive Date: 20100528
  Receipt Date: 20100517
  Transmission Date: 20101027
  Serious: Yes (Other)
  Sender: FDA-Public Use
  Company Number: 1-22665026

PATIENT
  Sex: Female

DRUGS (4)
  1. DICLOFENAC SODIUM DELAYED-RELEASE TABLETS USP 50 MG [Suspect]
     Indication: RHEUMATOID ARTHRITIS
     Dosage: 75 MG 2X/DAY, ORAL
     Route: 048
  2. PREDNISOLONE [Concomitant]
  3. METHOTREXATE [Concomitant]
  4. FOSAMAX [Concomitant]

REACTIONS (4)
  - ANAEMIA [None]
  - DIARRHOEA HAEMORRHAGIC [None]
  - GASTROINTESTINAL INFLAMMATION [None]
  - LARGE INTESTINAL ULCER [None]
